FAERS Safety Report 6600822-2 (Version None)
Quarter: 2010Q1

REPORT INFORMATION
  Report Type: 
  Country: None (occurrence: None)
  Receive Date: 20100225
  Receipt Date: 20100223
  Transmission Date: 20100710
  Serious: Yes (Hospitalization, Other)
  Sender: FDA-Public Use
  Company Number: US-ASTRAZENECA-2009UW20834

PATIENT
  Age: 45 Year
  Sex: Male
  Weight: 86.2 kg

DRUGS (10)
  1. SEROQUEL [Suspect]
     Indication: MANIA
     Route: 048
     Dates: start: 20060301, end: 20070501
  2. SEROQUEL [Suspect]
     Indication: DEPRESSION
     Route: 048
     Dates: start: 20060301, end: 20070501
  3. GEODON [Concomitant]
     Indication: POST-TRAUMATIC STRESS DISORDER
     Dates: start: 20070101
  4. RISPERDAL [Concomitant]
  5. ZOLOFT [Concomitant]
     Indication: DEPRESSION
  6. PRISTIQ [Concomitant]
     Indication: DEPRESSION
  7. TEMAZEPAM [Concomitant]
     Indication: POST-TRAUMATIC STRESS DISORDER
  8. OXYCODONE [Concomitant]
     Indication: PAIN
     Dates: start: 20080101
  9. HYDROCODONE [Concomitant]
     Indication: PAIN
     Dates: start: 20060101
  10. VALIUM [Concomitant]
     Indication: TREMOR

REACTIONS (13)
  - ABDOMINAL PAIN [None]
  - BACK PAIN [None]
  - BLOOD CHOLESTEROL INCREASED [None]
  - BLOOD GLUCOSE INCREASED [None]
  - BLOOD TRIGLYCERIDES INCREASED [None]
  - CHEST PAIN [None]
  - FALL [None]
  - GYNAECOMASTIA [None]
  - HEPATITIS [None]
  - JOINT INJURY [None]
  - PAIN [None]
  - PANCREATITIS [None]
  - TYPE 2 DIABETES MELLITUS [None]
